FAERS Safety Report 10384482 (Version 1)
Quarter: 2014Q3

REPORT INFORMATION
  Report Type: Spontaneous
  Country: US (occurrence: None)
  Receive Date: 20140813
  Receipt Date: 20140813
  Transmission Date: 20150326
  Serious: No
  Sender: FDA-Public Use
  Company Number: None

PATIENT
  Age: 66 Year
  Sex: Male
  Weight: 95.26 kg

DRUGS (11)
  1. ATORVASTATIN [Concomitant]
     Active Substance: ATORVASTATIN
  2. ASPIRIN. [Concomitant]
     Active Substance: ASPIRIN
  3. BUTRANS [Suspect]
     Active Substance: BUPRENORPHINE
     Indication: PHYSIOTHERAPY
     Dosage: STRENGTH:5 MCG/HR  1 PATCH  7 DAYS  ON THE SKIN
     Dates: start: 20140702, end: 20140702
  4. BUTRANS [Suspect]
     Active Substance: BUPRENORPHINE
     Indication: OCCUPATIONAL THERAPY
     Dosage: STRENGTH:5 MCG/HR  1 PATCH  7 DAYS  ON THE SKIN
     Dates: start: 20140702, end: 20140702
  5. GLIPIZIDE. [Concomitant]
     Active Substance: GLIPIZIDE
  6. ELIQUIS [Concomitant]
     Active Substance: APIXABAN
  7. LISINOPRIL. [Concomitant]
     Active Substance: LISINOPRIL
  8. METFORMIN HCL [Concomitant]
     Active Substance: METFORMIN HYDROCHLORIDE
  9. BUTRANS [Suspect]
     Active Substance: BUPRENORPHINE
     Indication: PAIN
     Dosage: STRENGTH:5 MCG/HR  1 PATCH  7 DAYS  ON THE SKIN
     Dates: start: 20140702, end: 20140702
  10. METOPROLOL TART [Concomitant]
  11. SPIRONOLACTONE. [Concomitant]
     Active Substance: SPIRONOLACTONE

REACTIONS (8)
  - Urticaria [None]
  - Swelling face [None]
  - Dysphonia [None]
  - Lip swelling [None]
  - Pruritus [None]
  - Rash [None]
  - Pharyngeal oedema [None]
  - Dyspnoea [None]

NARRATIVE: CASE EVENT DATE: 20140702
